FAERS Safety Report 7543119-9 (Version None)
Quarter: 2011Q2

REPORT INFORMATION
  Report Type: 
  Country: None (occurrence: None)
  Receive Date: 20110524
  Receipt Date: 20110308
  Transmission Date: 20111010
  Serious: No
  Sender: FDA-Public Use
  Company Number: 024600

PATIENT
  Sex: Male

DRUGS (1)
  1. CIMZIA [Suspect]
     Indication: CROHN'S DISEASE
     Dosage: (SUBCUTANEOUS)
     Route: 058
     Dates: start: 20101220

REACTIONS (6)
  - MUSCLE SPASMS [None]
  - INJECTION SITE ERYTHEMA [None]
  - ERUCTATION [None]
  - DRUG INEFFECTIVE [None]
  - FLATULENCE [None]
  - ABNORMAL FAECES [None]
